FAERS Safety Report 5581409-X (Version None)
Quarter: 2008Q1

REPORT INFORMATION
  Report Type: 
  Country: None (occurrence: None)
  Receive Date: 20080104
  Receipt Date: 20071228
  Transmission Date: 20080703
  Serious: Yes (Other)
  Sender: FDA-Public Use
  Company Number: JP-ALLERGAN-0712044US

PATIENT
  Sex: Male
  Weight: 12.5 kg

DRUGS (4)
  1. ALESION SYRUP [Suspect]
     Indication: DERMATITIS
     Dosage: 0.6 G, UNK
     Route: 048
     Dates: start: 20070928, end: 20071012
  2. ANTEBATE [Suspect]
     Indication: DERMATITIS
     Dosage: UNK, UNK
     Route: 061
     Dates: start: 20070928
  3. ZADITEN [Concomitant]
     Indication: DRUG USE FOR UNKNOWN INDICATION
     Dosage: 0.8 G, UNK
     Dates: start: 20071012, end: 20071019
  4. CLE MAMALLET [Concomitant]
     Indication: DRUG USE FOR UNKNOWN INDICATION

REACTIONS (1)
  - DYSARTHRIA [None]
